FAERS Safety Report 22119646 (Version 1)
Quarter: 2023Q1

REPORT INFORMATION
  Report Type: Report from Study
  Country: BR (occurrence: BR)
  Receive Date: 20230321
  Receipt Date: 20230321
  Transmission Date: 20230417
  Serious: Yes (Other)
  Sender: FDA-Public Use
  Company Number: BR-002147023-NVSC2022BR227322

PATIENT
  Age: 49 Year
  Sex: Female

DRUGS (6)
  1. KISQALI [Suspect]
     Active Substance: RIBOCICLIB
     Indication: Breast cancer
     Dosage: 3 DOSAGE FORM (START: 21 DAYS AND ONE WEEK BREAK)
     Route: 065
     Dates: start: 202209, end: 20221014
  2. KISQALI [Suspect]
     Active Substance: RIBOCICLIB
     Dosage: 2 DOSAGE FORM (START: 21 DAYS AND ONE WEEK BREAK) (END: END OF OCT 2022)
     Route: 065
     Dates: start: 20221024
  3. KISQALI [Suspect]
     Active Substance: RIBOCICLIB
     Dosage: UNK (START DATE 01 MAR)
     Route: 048
  4. ANASTROZOLE [Concomitant]
     Active Substance: ANASTROZOLE
     Indication: Product used for unknown indication
     Dosage: UNK (HORMONE)
     Route: 065
  5. TAMOXIFEN [Concomitant]
     Active Substance: TAMOXIFEN
     Indication: Product used for unknown indication
     Dosage: UNK
     Route: 065
  6. MORPHINE [Concomitant]
     Active Substance: MORPHINE
     Dosage: UNK
     Route: 065

REACTIONS (20)
  - Metastases to bone [Unknown]
  - Neoplasm malignant [Not Recovered/Not Resolved]
  - Decreased immune responsiveness [Recovering/Resolving]
  - Underweight [Unknown]
  - Retching [Recovering/Resolving]
  - Pain [Recovering/Resolving]
  - Drooling [Recovered/Resolved]
  - Abdominal discomfort [Recovering/Resolving]
  - Full blood count decreased [Recovering/Resolving]
  - Haemoglobin decreased [Recovering/Resolving]
  - Anaemia [Recovering/Resolving]
  - White blood cell count decreased [Recovering/Resolving]
  - Platelet count decreased [Recovering/Resolving]
  - Red blood cell count decreased [Recovering/Resolving]
  - Nausea [Recovered/Resolved]
  - Vomiting [Recovered/Resolved]
  - Vomiting [Recovered/Resolved]
  - Nausea [Unknown]
  - Vomiting [Unknown]
  - Product dose omission in error [Unknown]

NARRATIVE: CASE EVENT DATE: 20221001
